FAERS Safety Report 5715309-9 (Version None)
Quarter: 2008Q2

REPORT INFORMATION
  Report Type: 
  Country: None (occurrence: None)
  Receive Date: 20080423
  Receipt Date: 20080411
  Transmission Date: 20081010
  Serious: Yes (Other)
  Sender: FDA-Public Use
  Company Number: CA-PFIZER INC-2008028988

PATIENT
  Age: 54 Year
  Sex: Male

DRUGS (4)
  1. CHAMPIX [Suspect]
     Route: 048
  2. ATENOLOL [Concomitant]
  3. CALCIUM W/MAGNESIUM [Concomitant]
  4. VITAMIN D [Concomitant]

REACTIONS (4)
  - ARTHRALGIA [None]
  - DEPRESSION [None]
  - SUICIDAL IDEATION [None]
  - THROMBOPHLEBITIS [None]
